FAERS Safety Report 4775725-9 (Version None)
Quarter: 2005Q3

REPORT INFORMATION
  Report Type: 
  Country: None (occurrence: None)
  Receive Date: 20050920
  Receipt Date: 20050920
  Transmission Date: 20060218
  Serious: Yes (Other)
  Sender: FDA-Public Use
  Company Number: None

PATIENT
  Sex: Female
  Weight: 51.2565 kg

DRUGS (9)
  1. FORTEO [Suspect]
     Indication: OSTEOPOROSIS
     Dosage: 20 MCG/DAY, SUBCUTANEOUS [3 DOSES]
     Route: 058
     Dates: start: 20050901, end: 20050903
  2. TRAZODONE [Concomitant]
  3. LEVOXYL [Concomitant]
  4. VITAMIN D [Concomitant]
  5. CYMBALTA [Concomitant]
  6. MAGNESIUM [Concomitant]
  7. VITAMIN B-12 [Concomitant]
  8. ASCORBIC ACID [Concomitant]
  9. VITAMIN E [Concomitant]

REACTIONS (8)
  - ARTHRALGIA [None]
  - BACK PAIN [None]
  - BALANCE DISORDER [None]
  - BONE PAIN [None]
  - DIZZINESS [None]
  - FATIGUE [None]
  - HEADACHE [None]
  - NECK PAIN [None]
